FAERS Safety Report 12079642 (Version 1)
Quarter: 2016Q1

REPORT INFORMATION
  Report Type: Spontaneous
  Country: CH (occurrence: CH)
  Receive Date: 20160216
  Receipt Date: 20160216
  Transmission Date: 20160526
  Serious: Yes (Other)
  Sender: FDA-Public Use
  Company Number: CH-JNJFOC-20160206355

PATIENT
  Sex: Male

DRUGS (1)
  1. SIMPONI [Suspect]
     Active Substance: GOLIMUMAB
     Indication: COLITIS
     Dosage: SINCE 1 YEAR
     Route: 058
     Dates: start: 2015

REACTIONS (3)
  - Off label use [Unknown]
  - Product use issue [Unknown]
  - Colitis [Unknown]

NARRATIVE: CASE EVENT DATE: 2015
